FAERS Safety Report 10207017 (Version 1)
Quarter: 2014Q2

REPORT INFORMATION
  Report Type: Report from Study
  Country: CA (occurrence: CA)
  Receive Date: 20140530
  Receipt Date: 20140530
  Transmission Date: 20141212
  Serious: Yes (Hospitalization)
  Sender: FDA-Public Use
  Company Number: CA-JNJFOC-20140515374

PATIENT
  Age: 53 Year
  Sex: Male
  Weight: 51 kg

DRUGS (19)
  1. REMICADE [Suspect]
     Indication: ANKYLOSING SPONDYLITIS
     Route: 042
     Dates: start: 20101122
  2. FENTANYL [Suspect]
     Indication: PRODUCT USED FOR UNKNOWN INDICATION
     Route: 062
  3. FENTANYL [Suspect]
     Indication: PRODUCT USED FOR UNKNOWN INDICATION
     Route: 062
  4. TECTA [Concomitant]
     Route: 065
  5. BACLOFEN [Concomitant]
     Route: 065
  6. AVAPRO [Concomitant]
     Route: 065
  7. VITAMIN D [Concomitant]
     Route: 065
  8. VITAMIN B12 [Concomitant]
     Route: 065
  9. MULTIVITAMINS [Concomitant]
     Route: 065
  10. ASA [Concomitant]
     Route: 065
  11. METOPROLOL [Concomitant]
     Route: 065
  12. SERTRALINE [Concomitant]
     Route: 065
  13. REACTINE [Concomitant]
     Route: 065
  14. LENOLTEC NOS [Concomitant]
     Route: 065
  15. AMITRIPTYLINE [Concomitant]
     Route: 065
  16. TAMSULOSIN [Concomitant]
     Route: 065
  17. DOCUSATE [Concomitant]
     Route: 065
  18. RISEDRONATE [Concomitant]
     Route: 065
  19. BREEZEE [Concomitant]
     Route: 055

REACTIONS (2)
  - Syncope [Recovered/Resolved]
  - Fall [Recovered/Resolved]
